FAERS Safety Report 9350322 (Version 1)
Quarter: 2013Q2

REPORT INFORMATION
  Report Type: Spontaneous
  Country: FR (occurrence: FR)
  Receive Date: 20130617
  Receipt Date: 20130617
  Transmission Date: 20140414
  Serious: Yes (Other)
  Sender: FDA-Public Use
  Company Number: FR-JNJFOC-20130609192

PATIENT
  Age: 68 Year
  Sex: Female

DRUGS (4)
  1. ALOSTIL 2% [Suspect]
     Indication: ANDROGENETIC ALOPECIA
     Dosage: 2 SPRAYING PER DAY,??IN THE MORNING AND IN THE EVENING, ON 3 SCALP ZONES
     Route: 003
     Dates: start: 201201, end: 20130418
  2. ALOSTIL 2% [Suspect]
     Indication: ANDROGENETIC ALOPECIA
     Dosage: 2 SPRAYING PER DAY,??IN THE MORNING AND IN THE EVENING, ON 3 SCALP ZONES
     Route: 003
     Dates: start: 200909, end: 201207
  3. STILNOX [Concomitant]
     Indication: PRODUCT USED FOR UNKNOWN INDICATION
     Route: 048
  4. INEXIUM [Concomitant]
     Indication: PRODUCT USED FOR UNKNOWN INDICATION
     Route: 048

REACTIONS (3)
  - Cyanosis [Recovering/Resolving]
  - Dyspnoea [Recovering/Resolving]
  - Chest pain [Recovering/Resolving]
